FAERS Safety Report 6616224-9 (Version None)
Quarter: 2010Q1

REPORT INFORMATION
  Report Type: 
  Country: None (occurrence: None)
  Receive Date: 20100305
  Receipt Date: 20100223
  Transmission Date: 20100710
  Serious: Yes (Hospitalization)
  Sender: FDA-Public Use
  Company Number: US-WATSON-2010-02141

PATIENT
  Sex: Female

DRUGS (1)
  1. TRIVORA 28 (EE/LEVO) (0.03/0.05;0.04/0.075;0.03/0.125) (WATSON) [Suspect]
     Indication: CONTRACEPTION
     Dosage: 1 TABLET, DAILY
     Route: 048
     Dates: start: 19900101, end: 20091101

REACTIONS (5)
  - CARDIOMEGALY [None]
  - DYSPNOEA [None]
  - FATIGUE [None]
  - PALPITATIONS [None]
  - PULMONARY EMBOLISM [None]
